FAERS Safety Report 25663497 (Version 5)
Quarter: 2025Q4

REPORT INFORMATION
  Report Type: Report from Study
  Country: EU (occurrence: EU)
  Receive Date: 20250811
  Receipt Date: 20251119
  Transmission Date: 20260117
  Serious: Yes (Other)
  Sender: ABBVIE
  Company Number: EU-ABBVIE-6406995

PATIENT
  Age: 63 Year
  Sex: Female

DRUGS (17)
  1. FOSCARBIDOPA\FOSLEVODOPA [Suspect]
     Active Substance: FOSCARBIDOPA\FOSLEVODOPA
     Indication: Parkinson^s disease
     Dosage: 240 MG + 12 MG?FREQUENCY TEXT: UNKNOWN DOSES?LAST ADMIN DATE: 2025
     Route: 058
     Dates: start: 20250707
  2. FOSCARBIDOPA\FOSLEVODOPA [Suspect]
     Active Substance: FOSCARBIDOPA\FOSLEVODOPA
     Dosage: 240 MG + 12 MG?FREQUENCY TEXT: HI:0.55;BA:0.50;LOW:0.46, LAST ADMIN DATE: 2025
     Route: 058
     Dates: start: 202508
  3. FOSCARBIDOPA\FOSLEVODOPA [Suspect]
     Active Substance: FOSCARBIDOPA\FOSLEVODOPA
     Dosage: 240 MG + 12 MG, FREQUENCY TEXT: LO:1.8;HI:0.55;BA:0.50;LOW:0.46;EX:0.3.
     Route: 058
     Dates: start: 2025, end: 2025
  4. FOSCARBIDOPA\FOSLEVODOPA [Suspect]
     Active Substance: FOSCARBIDOPA\FOSLEVODOPA
     Dosage: 240 MG + 12 MG, FREQUENCY TEXT: ?LOW 0.57ML/H, BASE 0.60ML/H, HIGH 0.62ML/H, EXTRA 0.30ML, LOAD 1...
     Route: 058
     Dates: start: 20251015
  5. EXELON [Concomitant]
     Active Substance: RIVASTIGMINE TARTRATE
     Indication: Product used for unknown indication
     Dosage: FORM STRENGTH: 9.5 MILLIGRAM
     Dates: start: 2025
  6. EXELON [Concomitant]
     Active Substance: RIVASTIGMINE TARTRATE
     Indication: Product used for unknown indication
     Dosage: FORM STRENGTH: 4.6 MILLIGRAM?START DATE TEXT: BEFORE DUODOPA SUBCUTANEOUS?LAST ADMIN DATE: 2025
     Route: 062
     Dates: end: 2025
  7. SINEMET CR [Concomitant]
     Active Substance: CARBIDOPA\LEVODOPA
     Indication: Product used for unknown indication
     Dosage: FREQUENCY TEXT: AT BEDTIME?START DATE TEXT: BEFORE DUODOPA SUBCUTANEOUS?STOP DATE TEXT: AFTER DUO...
  8. BENSERAZIDE HYDROCHLORIDE\LEVODOPA [Concomitant]
     Active Substance: BENSERAZIDE HYDROCHLORIDE\LEVODOPA
     Indication: Product used for unknown indication
     Dosage: 0.25 TABLET?200/25
  9. BENSERAZIDE HYDROCHLORIDE\LEVODOPA [Concomitant]
     Active Substance: BENSERAZIDE HYDROCHLORIDE\LEVODOPA
     Indication: Product used for unknown indication
     Dosage: 0.25 TABLET?FREQUENCY TEXT: 8?START DATE TEXT: BEFORE DUODOPA SUBCUTANEOUS?STOP DATE TEXT: AFTER ...
  10. LYRICA [Concomitant]
     Active Substance: PREGABALIN
     Indication: Product used for unknown indication
     Dosage: FORM STRENGTH: 50 MILLIGRAM?FREQUENCY TEXT: AT BEDTIME?START DATE TEXT: BEFORE DUODOPA SUBCUTANEOUS
  11. NEUPRO [Concomitant]
     Active Substance: ROTIGOTINE
     Indication: Product used for unknown indication
     Dosage: FORM STRENGTH: 4 MILLIGRAM?START DATE TEXT: BEFORE DUODOPA SUBCUTANEOUS?STOP DATE TEXT: AFTER DUO...
     Route: 062
  12. MIDODRINE HYDROCHLORIDE [Concomitant]
     Active Substance: MIDODRINE HYDROCHLORIDE
     Indication: Product used for unknown indication
     Dosage: FREQUENCY TEXT: 11+1+0?START DATE TEXT: BEFORE DUODOPA SUBCUTANEOUS
  13. XADAGO [Concomitant]
     Active Substance: SAFINAMIDE MESYLATE
     Indication: Product used for unknown indication
     Dosage: FREQUENCY TEXT: 0+1+0?START DATE TEXT: BEFORE DUODOPA SUBCUTANEOUS?100
  14. POLYETHYLENE GLYCOLS [Concomitant]
     Active Substance: POLYETHYLENE GLYCOLS
     Indication: Product used for unknown indication
     Dosage: START DATE TEXT: BEFORE DUODOPA SUBCUTANEOUS
  15. TRAZODONE HYDROCHLORIDE [Concomitant]
     Active Substance: TRAZODONE HYDROCHLORIDE
     Indication: Product used for unknown indication
     Dosage: FORM STRENGTH: 300 MILLIGRAM?FREQUENCY TEXT: AT BEDTIME?START DATE TEXT: BEFORE DUODOPA SUBCUTANEOUS
  16. RIVOTRIL [Concomitant]
     Active Substance: CLONAZEPAM
     Indication: Product used for unknown indication
     Dosage: 0.25 TABLET
  17. RIVOTRIL [Concomitant]
     Active Substance: CLONAZEPAM
     Indication: Product used for unknown indication
     Dosage: 0.25 TABLET?FORM STRENGTH: 2 MILLIGRAM?FREQUENCY TEXT: AT BEDTIME?START DATE TEXT: BEFORE DUODOPA...

REACTIONS (4)
  - Cognitive disorder [Not Recovered/Not Resolved]
  - Aggression [Not Recovered/Not Resolved]
  - Hallucination [Recovering/Resolving]
  - Incorrect product administration duration [Not Recovered/Not Resolved]

NARRATIVE: CASE EVENT DATE: 20250101
